FAERS Safety Report 7153772-X (Version None)
Quarter: 2010Q4

REPORT INFORMATION
  Report Type: 
  Country: None (occurrence: None)
  Receive Date: 20101213
  Receipt Date: 20100119
  Transmission Date: 20110411
  Serious: No
  Sender: FDA-Public Use
  Company Number: US-ABBOTT-10P-163-0618529-00

PATIENT
  Sex: Female
  Weight: 74.002 kg

DRUGS (2)
  1. MERIDIA [Suspect]
     Indication: WEIGHT CONTROL
     Route: 048
  2. MERIDIA [Suspect]
     Indication: DEPRESSION
     Dosage: LOT NUMBER WAS UNKNOWN.
     Route: 048

REACTIONS (5)
  - ABDOMINAL DISCOMFORT [None]
  - GASTRIC DISORDER [None]
  - INSOMNIA [None]
  - IRRITABILITY [None]
  - TREMOR [None]
